FAERS Safety Report 10231424 (Version 1)
Quarter: 2014Q2

REPORT INFORMATION
  Report Type: Spontaneous
  Country: VN (occurrence: VN)
  Receive Date: 20140611
  Receipt Date: 20140611
  Transmission Date: 20141212
  Serious: Yes (Hospitalization)
  Sender: FDA-Public Use
  Company Number: VN-ASTRAZENECA-2014SE39031

PATIENT
  Age: 77 Year
  Sex: Male

DRUGS (2)
  1. BRILINTA [Suspect]
     Route: 048
  2. BRILINTA [Suspect]
     Route: 048

REACTIONS (3)
  - Gastric neoplasm [Unknown]
  - Hypotension [Unknown]
  - Lower gastrointestinal haemorrhage [Unknown]
